FAERS Safety Report 7131115-5 (Version None)
Quarter: 2010Q4

REPORT INFORMATION
  Report Type: 
  Country: None (occurrence: None)
  Receive Date: 20101201
  Receipt Date: 20101122
  Transmission Date: 20110411
  Serious: Yes (Other)
  Sender: FDA-Public Use
  Company Number: GXBR2010US02012

PATIENT
  Sex: Male

DRUGS (2)
  1. OMNITROPE [Suspect]
  2. FENTANYL [Concomitant]
     Indication: SURGERY
     Dosage: UNK
     Dates: start: 20101122

REACTIONS (3)
  - OXYGEN SATURATION DECREASED [None]
  - TYMPANIC MEMBRANE PERFORATION [None]
  - TYMPANOPLASTY [None]
